FAERS Safety Report 6526670-X (Version None)
Quarter: 2010Q1

REPORT INFORMATION
  Report Type: 
  Country: None (occurrence: None)
  Receive Date: 20100105
  Receipt Date: 20091231
  Transmission Date: 20100710
  Serious: Yes (Death, Hospitalization)
  Sender: FDA-Public Use
  Company Number: US-EISAI INC.-M7002-00632-CLI-US

PATIENT
  Sex: Male
  Weight: 82 kg

DRUGS (6)
  1. ONTAK [Suspect]
     Indication: LYMPHOMA
     Route: 041
     Dates: end: 20080115
  2. CYCLOPHOSPHAMIDE [Concomitant]
     Route: 041
     Dates: end: 20080118
  3. DOXORUBIENE [Concomitant]
     Route: 041
     Dates: end: 20080118
  4. VINCRISTINE [Concomitant]
     Route: 048
     Dates: end: 20080118
  5. PREDNISONE [Concomitant]
     Route: 048
     Dates: start: 20080116, end: 20080118
  6. NEULASTA [Concomitant]
     Route: 058
     Dates: start: 20080117

REACTIONS (3)
  - DEATH [None]
  - OEDEMA [None]
  - PAIN [None]
